FAERS Safety Report 21246253 (Version 1)
Quarter: 2022Q3

REPORT INFORMATION
  Report Type: Spontaneous
  Country: IT (occurrence: IT)
  Receive Date: 20220824
  Receipt Date: 20220824
  Transmission Date: 20221027
  Serious: Yes (Other)
  Sender: FDA-Public Use
  Company Number: None

PATIENT
  Age: 74 Year
  Sex: Female
  Weight: 60 kg

DRUGS (2)
  1. CISPLATIN [Suspect]
     Active Substance: CISPLATIN
     Indication: Ovarian cancer
     Dosage: CONCENTRATE FOR SOLUTION FOR INJECTION/INFUSION, UNIT DOSE :  90 MG,  FREQUENCY TIME : 21 DAYS
     Route: 065
  2. PACLITAXEL [Concomitant]
     Active Substance: PACLITAXEL
     Indication: Product used for unknown indication
     Dosage: UNIT DOSE :  80 MG,CONCENTRATE FOR SOLUTION FOR INJECTION/INFUSION
     Route: 065

REACTIONS (4)
  - Pruritus [Recovered/Resolved]
  - Periorbital oedema [Recovered/Resolved]
  - Oedema [Recovered/Resolved]
  - Erythema [Recovered/Resolved]

NARRATIVE: CASE EVENT DATE: 20220728
